FAERS Safety Report 12598416 (Version 1)
Quarter: 2016Q3

REPORT INFORMATION
  Report Type: Spontaneous
  Country: US (occurrence: None)
  Receive Date: 20160726
  Receipt Date: 20160726
  Transmission Date: 20161109
  Serious: No
  Sender: FDA-Public Use
  Company Number: None

PATIENT
  Sex: Female

DRUGS (2)
  1. KEFLEX [Suspect]
     Active Substance: CEPHALEXIN
  2. BACTRIM [Suspect]
     Active Substance: SULFAMETHOXAZOLE\TRIMETHOPRIM

REACTIONS (7)
  - Urinary tract infection bacterial [None]
  - Neuropathy peripheral [None]
  - Carpal tunnel syndrome [None]
  - Blood glucose increased [None]
  - Depression [None]
  - Blood glucose decreased [None]
  - Decreased activity [None]
